FAERS Safety Report 11142109 (Version 1)
Quarter: 2015Q2

REPORT INFORMATION
  Report Type: Spontaneous
  Country: US (occurrence: US)
  Receive Date: 20150527
  Receipt Date: 20150527
  Transmission Date: 20150821
  Serious: No
  Sender: FDA-Public Use
  Company Number: US-MALLINCKRODT-QSC-2014-0613

PATIENT
  Age: 79 Year
  Sex: Female
  Weight: 69.39 kg

DRUGS (6)
  1. AZOR                               /00595201/ [Concomitant]
     Active Substance: ALPRAZOLAM
     Dosage: 6.9 MG, QD
     Route: 048
  2. H.P. ACTHAR [Suspect]
     Active Substance: CORTICOTROPIN
     Indication: RHEUMATOID ARTHRITIS
     Dosage: 1 ML, Q3DAYS
     Route: 058
     Dates: start: 20140820
  3. ORENCIA [Concomitant]
     Active Substance: ABATACEPT
     Dosage: 750 MG, Q4WEEKS
  4. LANTUS [Concomitant]
     Active Substance: INSULIN GLARGINE
     Dosage: UNK
  5. HUMALOG [Concomitant]
     Active Substance: INSULIN LISPRO
     Dosage: UNK
     Dates: end: 20140825
  6. LEVOTHYROXINE [Concomitant]
     Active Substance: LEVOTHYROXINE
     Dosage: 100 ?G, QD
     Route: 048

REACTIONS (1)
  - Hypoglycaemia [Recovered/Resolved]

NARRATIVE: CASE EVENT DATE: 20140825
